FAERS Safety Report 15904561 (Version 3)
Quarter: 2019Q1

REPORT INFORMATION
  Report Type: Spontaneous
  Country: US (occurrence: US)
  Receive Date: 20190204
  Receipt Date: 20190215
  Transmission Date: 20190417
  Serious: Yes (Other)
  Sender: FDA-Public Use
  Company Number: US-RECKITT BENCKISER HEALTHCARE INT LIMITED-RB-81275-2019

PATIENT
  Sex: Female

DRUGS (2)
  1. DELSYM [Suspect]
     Active Substance: DEXTROMETHORPHAN
     Dosage: UNK, SINGLE (DRANK A WHOLE BOTTLE OF THE PRODUCT AT ONCE)
     Route: 048
     Dates: start: 20190129
  2. DELSYM [Suspect]
     Active Substance: DEXTROMETHORPHAN
     Indication: INTENTIONAL OVERDOSE
     Dosage: UNK, QD (TOOK A WHOLE BOTTLE OF THE PRODUCT A DAY)
     Route: 048
     Dates: start: 201901

REACTIONS (3)
  - Mental disorder [Recovering/Resolving]
  - Irritability [Recovering/Resolving]
  - Intentional overdose [Recovering/Resolving]

NARRATIVE: CASE EVENT DATE: 20190129
